FAERS Safety Report 7214321-0 (Version None)
Quarter: 2011Q1

REPORT INFORMATION
  Report Type: 
  Country: None (occurrence: None)
  Receive Date: 20110107
  Receipt Date: 20101227
  Transmission Date: 20110831
  Serious: Yes (Hospitalization, Other)
  Sender: FDA-Public Use
  Company Number: PHHY2010FR64712

PATIENT
  Sex: Female
  Weight: 75 kg

DRUGS (2)
  1. COTAREG [Suspect]
     Indication: HYPERTENSION
     Dosage: 160/25 MG QD,ONCE DAY
     Dates: start: 20050101
  2. METHOTREXATE [Suspect]
     Dosage: 03 DF

REACTIONS (4)
  - TONSILLAR HYPERTROPHY [None]
  - LYMPHOMA [None]
  - LYMPHOID TISSUE HYPERPLASIA [None]
  - PHARYNGEAL OEDEMA [None]
